FAERS Safety Report 8073081-4 (Version None)
Quarter: 2012Q1

REPORT INFORMATION
  Report Type: 
  Country: None (occurrence: None)
  Receive Date: 20120120
  Receipt Date: 20120110
  Transmission Date: 20120608
  Serious: Yes (Congenital Anomaly)
  Sender: FDA-Public Use
  Company Number: DKLU1076152

PATIENT

DRUGS (4)
  1. ONFI [Suspect]
     Indication: MATERNAL EXPOSURE TIMING UNSPECIFIED
     Dosage: TRANSPLACENTAL
     Route: 064
     Dates: start: 20110101, end: 20110201
  2. ZONISAMIDE [Suspect]
     Indication: MATERNAL EXPOSURE TIMING UNSPECIFIED
     Dosage: TRANSPLACENTAL
     Route: 064
     Dates: start: 20110201, end: 20110301
  3. ZONISAMIDE [Suspect]
     Indication: MATERNAL EXPOSURE TIMING UNSPECIFIED
     Dosage: TRANSPLACENTAL
     Route: 064
     Dates: start: 20110301
  4. ZONISAMIDE [Suspect]
     Indication: MATERNAL EXPOSURE TIMING UNSPECIFIED
     Dosage: TRANSPLACENTAL
     Route: 064
     Dates: start: 20100101, end: 20110101

REACTIONS (2)
  - POLYDACTYLY [None]
  - MATERNAL DRUGS AFFECTING FOETUS [None]
